FAERS Safety Report 5511714-4 (Version None)
Quarter: 2007Q4

REPORT INFORMATION
  Report Type: 
  Country: None (occurrence: None)
  Receive Date: 20071109
  Receipt Date: 20071031
  Transmission Date: 20080405
  Serious: Yes (Hospitalization)
  Sender: FDA-Public Use
  Company Number: DE-ABBOTT-07P-062-0422851-00

PATIENT
  Age: 41 Year
  Sex: Female

DRUGS (3)
  1. ZEMPLAR [Suspect]
     Indication: HYPERPARATHYROIDISM SECONDARY
     Route: 042
     Dates: start: 20070416
  2. ZEMPLAR [Suspect]
     Route: 042
     Dates: start: 20061210, end: 20070119
  3. ZEMPLAR [Suspect]
     Route: 042
     Dates: start: 20070119, end: 20070416

REACTIONS (1)
  - RENAL TRANSPLANT [None]
